FAERS Safety Report 14197111 (Version 3)
Quarter: 2019Q1

REPORT INFORMATION
  Report Type: Report from Study
  Country: US (occurrence: US)
  Receive Date: 20171116
  Receipt Date: 20190129
  Transmission Date: 20190417
  Serious: Yes (Hospitalization)
  Sender: FDA-Public Use
  Company Number: US-ACTELION-A-US2014-110679

PATIENT
  Age: 39 Year
  Sex: Female
  Weight: 78.46 kg

DRUGS (6)
  1. TRACLEER [Suspect]
     Active Substance: BOSENTAN
     Dosage: UNK
     Route: 048
  2. XARELTO [Concomitant]
     Active Substance: RIVAROXABAN
  3. REMODULIN [Concomitant]
     Active Substance: TREPROSTINIL
  4. SILDENAFIL. [Concomitant]
     Active Substance: SILDENAFIL
  5. TRACLEER [Suspect]
     Active Substance: BOSENTAN
     Indication: PULMONARY HYPERTENSION
     Dosage: 125 MG, BID
     Route: 048
     Dates: start: 20160805
  6. ORENITRAM [Concomitant]
     Active Substance: TREPROSTINIL
     Dosage: 10.625 MG, TID

REACTIONS (12)
  - Chills [Unknown]
  - Fluid retention [Unknown]
  - Nausea [Unknown]
  - Migraine [Unknown]
  - Malaise [Unknown]
  - Pancreatitis [Unknown]
  - Decreased appetite [Unknown]
  - Renal failure [Unknown]
  - Diarrhoea [Unknown]
  - Arthralgia [Unknown]
  - Headache [Unknown]
  - Pain [Unknown]
